FAERS Safety Report 17429222 (Version 1)
Quarter: 2020Q1

REPORT INFORMATION
  Report Type: Spontaneous
  Country: US (occurrence: US)
  Receive Date: 20200218
  Receipt Date: 20200218
  Transmission Date: 20200409
  Serious: Yes (Death, Other)
  Sender: FDA-Public Use
  Company Number: US-PFIZER INC-2020054987

PATIENT
  Age: 65 Year
  Sex: Male

DRUGS (4)
  1. CYTOSINE ARABINOSIDE [Concomitant]
     Active Substance: CYTARABINE
     Indication: LEUKOCYTOSIS
     Dosage: 80 MG/M2, DAILY (AS A CONTINUOUS INFUSION) CYCLIC, 4 CYCLES
     Route: 041
     Dates: start: 1974
  2. VINCRISTINE SULFATE. [Suspect]
     Active Substance: VINCRISTINE SULFATE
     Indication: LEUKOCYTOSIS
     Dosage: 2 MG, CYCLIC (ON DAYS 1 AND 5) 4 CYCLES
     Route: 042
     Dates: start: 1974
  3. DOXORUBICIN [Concomitant]
     Active Substance: DOXORUBICIN
     Indication: LEUKOCYTOSIS
     Dosage: 10 MG/M2, CYCLIC (ON DAYS 1, 3 AND 5) 4 CYCLES
     Dates: start: 1974
  4. PREDNISONE. [Concomitant]
     Active Substance: PREDNISONE
     Indication: LEUKOCYTOSIS
     Dosage: 40 MG/M2, DAILY, 4 CYCLES, CYCLIC
     Route: 048
     Dates: start: 1974

REACTIONS (1)
  - Neuropathy peripheral [Recovered/Resolved]
